FAERS Safety Report 6885866-8 (Version None)
Quarter: 2010Q3

REPORT INFORMATION
  Report Type: 
  Country: None (occurrence: None)
  Receive Date: 20100729
  Receipt Date: 20081226
  Transmission Date: 20110219
  Serious: Yes (Other)
  Sender: FDA-Public Use
  Company Number: US-PFIZER INC-2008083795

PATIENT
  Sex: Female
  Weight: 76.818 kg

DRUGS (3)
  1. CELEBREX [Suspect]
     Indication: ARTHRALGIA
     Dates: start: 20080925, end: 20081003
  2. ATENOLOL [Concomitant]
  3. ZANTAC [Concomitant]

REACTIONS (1)
  - MYALGIA [None]
